APPROVED DRUG PRODUCT: BUPRENORPHINE HYDROCHLORIDE
Active Ingredient: BUPRENORPHINE HYDROCHLORIDE
Strength: EQ 8MG BASE
Dosage Form/Route: TABLET;SUBLINGUAL
Application: A201760 | Product #002 | TE Code: AB
Applicant: SUN PHARMACEUTICAL INDUSTRIES LTD
Approved: Jan 29, 2016 | RLD: No | RS: No | Type: RX